FAERS Safety Report 10010762 (Version 2)
Quarter: 2014Q1

REPORT INFORMATION
  Report Type: Report from Study
  Country: NL (occurrence: NL)
  Receive Date: 20140314
  Receipt Date: 20140314
  Transmission Date: 20141002
  Serious: Yes (Other)
  Sender: FDA-Public Use
  Company Number: NL-BAYER-2014-021237

PATIENT
  Age: 35 Year
  Sex: Male

DRUGS (2)
  1. BETAFERON [Suspect]
     Dosage: 250 ?G, QOD
     Dates: start: 20140129, end: 2014
  2. MINOXIDIL [Concomitant]

REACTIONS (8)
  - Angina pectoris [Recovered/Resolved]
  - Influenza [Not Recovered/Not Resolved]
  - Headache [Recovered/Resolved]
  - Feeling hot [Recovered/Resolved]
  - Chills [Recovered/Resolved]
  - Hyperhidrosis [Recovered/Resolved]
  - Movement disorder [Recovered/Resolved]
  - Chest pain [None]
